FAERS Safety Report 19060838 (Version 1)
Quarter: 2021Q1

REPORT INFORMATION
  Report Type: Spontaneous
  Country: US (occurrence: US)
  Receive Date: 20210325
  Receipt Date: 20210325
  Transmission Date: 20210420
  Serious: Yes (Life-Threatening, Other)
  Sender: FDA-Public Use
  Company Number: US-MYLANLABS-2021M1017802

PATIENT
  Age: 48 Year
  Sex: Female

DRUGS (2)
  1. EPIPEN [Suspect]
     Active Substance: EPINEPHRINE
     Indication: ANAPHYLACTIC REACTION
     Dosage: AS NEEDED
     Route: 065
     Dates: start: 20210317, end: 20210317
  2. FLOVENT [Concomitant]
     Active Substance: FLUTICASONE PROPIONATE
     Indication: PRODUCT USED FOR UNKNOWN INDICATION
     Dosage: UNK

REACTIONS (1)
  - Therapeutic product effect incomplete [Unknown]

NARRATIVE: CASE EVENT DATE: 202103
